FAERS Safety Report 20024212 (Version 1)
Quarter: 2021Q4

REPORT INFORMATION
  Report Type: Spontaneous
  Country: DE (occurrence: DE)
  Receive Date: 20211102
  Receipt Date: 20211102
  Transmission Date: 20220303
  Serious: Yes (Hospitalization)
  Sender: FDA-Public Use
  Company Number: DE-ADRED-06957-01

PATIENT
  Age: 52 Year
  Sex: Male
  Weight: 80 kg

DRUGS (3)
  1. EZETIMIBE [Suspect]
     Active Substance: EZETIMIBE
     Indication: Product used for unknown indication
     Dosage: 10 MILLIGRAM, QD (0-0-1-0)
  2. ROSUVASTATIN [Concomitant]
     Active Substance: ROSUVASTATIN
     Dosage: 40 MILLIGRAM, QD, 0-0-1-0
  3. FONDAPARINUX [Concomitant]
     Active Substance: FONDAPARINUX
     Dosage: 1 DOSAGE FORM, QD (1 FS, 0-0-1-0)

REACTIONS (5)
  - Hyperhidrosis [Unknown]
  - Restlessness [Unknown]
  - Tachycardia [Unknown]
  - Paraesthesia [Unknown]
  - Dizziness [Unknown]
